FAERS Safety Report 4799947-6 (Version None)
Quarter: 2005Q4

REPORT INFORMATION
  Report Type: 
  Country: None (occurrence: None)
  Receive Date: 20051012
  Receipt Date: 20051012
  Transmission Date: 20060501
  Serious: Yes (Hospitalization, Other)
  Sender: FDA-Public Use
  Company Number: None

PATIENT
  Sex: Female
  Weight: 57.63 kg

DRUGS (2)
  1. TAXOL [Suspect]
     Indication: NON-SMALL CELL LUNG CANCER
     Dosage: SEE IMAGE
     Dates: start: 20050914, end: 20050928
  2. CARBOPLATIN [Suspect]
     Dosage: SEE IMAGE
     Dates: start: 20050914, end: 20050928

REACTIONS (1)
  - CONSTIPATION [None]
